FAERS Safety Report 25284846 (Version 1)
Quarter: 2025Q2

REPORT INFORMATION
  Report Type: Spontaneous
  Country: US (occurrence: US)
  Receive Date: 20250508
  Receipt Date: 20250508
  Transmission Date: 20250717
  Serious: Yes (Other)
  Sender: AMGEN
  Company Number: US-AMGEN-USASP2025088207

PATIENT
  Sex: Female

DRUGS (1)
  1. PROLIA [Suspect]
     Active Substance: DENOSUMAB
     Indication: Product used for unknown indication
     Dosage: UNK, Q6MO
     Route: 065

REACTIONS (10)
  - Compression fracture [Unknown]
  - Pertussis [Unknown]
  - Osteogenesis imperfecta [Unknown]
  - Near death experience [Unknown]
  - Multiple fractures [Unknown]
  - Gastrointestinal disorder [Unknown]
  - Drug hypersensitivity [Unknown]
  - Foot deformity [Unknown]
  - Gait disturbance [Unknown]
  - Fatigue [Unknown]
